FAERS Safety Report 20741011 (Version 7)
Quarter: 2024Q1

REPORT INFORMATION
  Report Type: Spontaneous
  Country: US (occurrence: US)
  Receive Date: 20220422
  Receipt Date: 20240112
  Transmission Date: 20240409
  Serious: No
  Sender: FDA-Public Use
  Company Number: US-PFIZER INC-202200169290

PATIENT
  Age: 70 Year
  Sex: Female

DRUGS (3)
  1. IBRANCE [Suspect]
     Active Substance: PALBOCICLIB
     Dosage: 100 MG, CYCLIC (ONCE DAILY 21 DAYS ON AND 7 DAYS OFF)
     Dates: start: 20190204
  2. IBRANCE [Suspect]
     Active Substance: PALBOCICLIB
     Dosage: 100 MG
     Dates: start: 20210101
  3. IBRANCE [Suspect]
     Active Substance: PALBOCICLIB
     Dosage: 100 MG, CYCLIC (TAKE 100 MG BY MOUTH DAILY FOR 21 DAYS, THEN 7 DAYS OFF)

REACTIONS (3)
  - Tremor [Unknown]
  - Fatigue [Unknown]
  - Dyspnoea exertional [Unknown]
